FAERS Safety Report 9921500 (Version 1)
Quarter: 2014Q1

REPORT INFORMATION
  Report Type: Spontaneous
  Country: CA (occurrence: CA)
  Receive Date: 20140225
  Receipt Date: 20140225
  Transmission Date: 20141002
  Serious: Yes (Other)
  Sender: FDA-Public Use
  Company Number: CA-TARO PHARMACEUTICALS U.S.A., INC-2014SUN00382

PATIENT
  Age: 3 Year
  Sex: Male

DRUGS (3)
  1. TARO-CARBAMAZEPINE ORAL SUSPENSION 100 MG/5 ML [Suspect]
     Indication: CONVULSION
     Dosage: THRICE DAILY (11 ML, 11 ML AND 12 ML)
     Route: 048
     Dates: start: 201207, end: 20140212
  2. TOPIRAMATE LIQUID 6 MG/ML [Concomitant]
     Dosage: 7 ML, BID
     Dates: start: 201309
  3. ATIVAN [Concomitant]
     Dosage: 1 MG, PRN, WHEN SEIZURES LAST FOR MORE THAN 5 MINUTES
     Route: 060

REACTIONS (6)
  - Convulsion [Recovered/Resolved]
  - Anticonvulsant drug level decreased [Recovered/Resolved]
  - Product physical consistency issue [Unknown]
  - Nystagmus [Recovered/Resolved]
  - Fatigue [Recovered/Resolved]
  - Nausea [Recovered/Resolved]
